FAERS Safety Report 8838812 (Version 1)
Quarter: 2012Q4

REPORT INFORMATION
  Report Type: Report from Study
  Country: US (occurrence: US)
  Receive Date: 20121014
  Receipt Date: 20121014
  Transmission Date: 20130627
  Serious: Yes (Other)
  Sender: FDA-Public Use
  Company Number: US-US-EMD SERONO, INC.-7166563

PATIENT
  Sex: Female

DRUGS (2)
  1. REBIF [Suspect]
     Indication: MULTIPLE SCLEROSIS
     Dates: start: 200807, end: 201108
  2. REBIF [Suspect]
     Route: 058
     Dates: start: 20120828

REACTIONS (4)
  - Gallbladder disorder [Unknown]
  - Vaginitis bacterial [Recovered/Resolved]
  - Fungal infection [Recovered/Resolved]
  - Injection site pain [Unknown]
